FAERS Safety Report 6131366-2 (Version None)
Quarter: 2009Q1

REPORT INFORMATION
  Report Type: 
  Country: None (occurrence: None)
  Receive Date: 20090325
  Receipt Date: 20080501
  Transmission Date: 20090719
  Serious: No
  Sender: FDA-Public Use
  Company Number: US-BRISTOL-MYERS SQUIBB COMPANY-14155444

PATIENT
  Age: 62 Year
  Sex: Male

DRUGS (1)
  1. ERBITUX [Suspect]
     Indication: RECTAL CANCER METASTATIC
     Dosage: 2ND DOSE EITHER ON 11APR08 OR 17APR08
     Route: 042
     Dates: start: 20080407, end: 20080407

REACTIONS (2)
  - DRUG HYPERSENSITIVITY [None]
  - HYPOAESTHESIA FACIAL [None]
